FAERS Safety Report 19784101 (Version 1)
Quarter: 2021Q3

REPORT INFORMATION
  Report Type: Spontaneous
  Country: US (occurrence: US)
  Receive Date: 20210902
  Receipt Date: 20210902
  Transmission Date: 20211014
  Serious: No
  Sender: FDA-Public Use
  Company Number: None

PATIENT
  Age: 34 Year
  Sex: Female
  Weight: 52.16 kg

DRUGS (2)
  1. IBUPROFEN. [Concomitant]
     Active Substance: IBUPROFEN
  2. PARAGARD T 380A [Suspect]
     Active Substance: COPPER
     Dates: start: 20161206, end: 20171205

REACTIONS (2)
  - Vulvovaginal pain [None]
  - Vaginal haemorrhage [None]

NARRATIVE: CASE EVENT DATE: 20171207
